FAERS Safety Report 19417583 (Version 1)
Quarter: 2021Q2

REPORT INFORMATION
  Report Type: Spontaneous
  Country: US (occurrence: US)
  Receive Date: 20210615
  Receipt Date: 20210615
  Transmission Date: 20210717
  Serious: No
  Sender: FDA-Public Use
  Company Number: US-009507513-2105USA004035

PATIENT
  Age: 80 Year
  Sex: Female

DRUGS (8)
  1. LABETALOL [Suspect]
     Active Substance: LABETALOL\LABETALOL HYDROCHLORIDE
     Indication: SECONDARY HYPERTENSION
     Dosage: UNK
  2. PRINIVIL [Suspect]
     Active Substance: LISINOPRIL
     Indication: SECONDARY HYPERTENSION
     Dosage: UNK
     Route: 048
  3. PRINIVIL [Suspect]
     Active Substance: LISINOPRIL
     Dosage: UNK, MAXIMIZATION OF REGIMEN
     Route: 048
  4. LABETALOL [Suspect]
     Active Substance: LABETALOL\LABETALOL HYDROCHLORIDE
     Dosage: UNK, MAXIMIZATION OF REGIMEN
  5. HYDROCHLORTHIAZID [Suspect]
     Active Substance: HYDROCHLOROTHIAZIDE
     Indication: SECONDARY HYPERTENSION
     Dosage: UNK
  6. AMLODIPINE [Suspect]
     Active Substance: AMLODIPINE BESYLATE
     Dosage: UNK, MAXIMIZATION OF REGIMEN
  7. AMLODIPINE [Suspect]
     Active Substance: AMLODIPINE BESYLATE
     Indication: SECONDARY HYPERTENSION
     Dosage: UNK
  8. HYDROCHLORTHIAZID [Suspect]
     Active Substance: HYDROCHLOROTHIAZIDE
     Dosage: UNK, MAXIMIZATION OF REGIMEN

REACTIONS (1)
  - Drug ineffective [Unknown]
